FAERS Safety Report 8921965 (Version 1)
Quarter: 2012Q4

REPORT INFORMATION
  Report Type: Spontaneous
  Country: US (occurrence: None)
  Receive Date: 20121119
  Receipt Date: 20121119
  Transmission Date: 20130627
  Serious: Yes (Other)
  Sender: FDA-Public Use
  Company Number: None

PATIENT
  Age: 50 Year
  Sex: Male
  Weight: 79.38 kg

DRUGS (1)
  1. PROPECIA [Suspect]
     Indication: MALE PATTERN BALDNESS
     Dosage: 1mg daily po
     Route: 048
     Dates: start: 20090601, end: 20120901

REACTIONS (11)
  - Painful ejaculation [None]
  - Ejaculation failure [None]
  - Dysuria [None]
  - Urinary tract infection [None]
  - Erectile dysfunction [None]
  - Genital hypoaesthesia [None]
  - Libido decreased [None]
  - Paraesthesia [None]
  - Depression [None]
  - Penile vascular disorder [None]
  - Burning sensation [None]
